FAERS Safety Report 15464766 (Version 1)
Quarter: 2018Q4

REPORT INFORMATION
  Report Type: Spontaneous
  Country: FR (occurrence: FR)
  Receive Date: 20181004
  Receipt Date: 20181004
  Transmission Date: 20190204
  Serious: Yes (Other)
  Sender: FDA-Public Use
  Company Number: PHHY2018FR114128

PATIENT
  Age: 23 Year
  Sex: Male

DRUGS (1)
  1. NEORAL [Suspect]
     Active Substance: CYCLOSPORINE
     Indication: DERMATITIS ATOPIC
     Dosage: 50 MG, UNK
     Route: 065
     Dates: start: 201809, end: 20180927

REACTIONS (2)
  - Urinary retention [Unknown]
  - Renal pain [Recovered/Resolved]
